FAERS Safety Report 22246977 (Version 1)
Quarter: 2023Q2

REPORT INFORMATION
  Report Type: Report from Study
  Country: CA (occurrence: CA)
  Receive Date: 20230424
  Receipt Date: 20230424
  Transmission Date: 20230722
  Serious: Yes (Hospitalization, Other)
  Sender: FDA-Public Use
  Company Number: CA-TEVA-2023-CA-2879584

PATIENT
  Age: 49 Year
  Sex: Female

DRUGS (3)
  1. AJOVY [Suspect]
     Active Substance: FREMANEZUMAB-VFRM
     Indication: Migraine prophylaxis
     Dosage: FORM STRENGTH AND UNIT DOSE: 225MILLIGRAM, 225MG MONTHLY, LAST DOSE ADMINISTERED DATE 15-MAR-2023
     Route: 058
     Dates: start: 202212
  2. TOPAMAX [Concomitant]
     Active Substance: TOPIRAMATE
     Indication: Product used for unknown indication
  3. BOTOX [Concomitant]
     Active Substance: ONABOTULINUMTOXINA
     Indication: Product used for unknown indication

REACTIONS (9)
  - Hospitalisation [Unknown]
  - Gait inability [Unknown]
  - Injection site erythema [Unknown]
  - Peripheral swelling [Unknown]
  - Erythema [Unknown]
  - Swelling face [Unknown]
  - Fatigue [Unknown]
  - Dizziness [Unknown]
  - Insurance issue [Unknown]

NARRATIVE: CASE EVENT DATE: 20230301
